FAERS Safety Report 18154109 (Version 1)
Quarter: 2020Q3

REPORT INFORMATION
  Report Type: Spontaneous
  Country: CN (occurrence: CN)
  Receive Date: 20200816
  Receipt Date: 20200816
  Transmission Date: 20201103
  Serious: Yes (Other)
  Sender: FDA-Public Use
  Company Number: CN-PFIZER INC-2020315388

PATIENT
  Age: 78 Year
  Sex: Male

DRUGS (1)
  1. LIPITOR [Suspect]
     Active Substance: ATORVASTATIN CALCIUM
     Indication: CORONARY ARTERY DISEASE
     Dosage: 20 MG, 1X/DAY
     Route: 048
     Dates: start: 20200108, end: 20200716

REACTIONS (2)
  - Condition aggravated [Recovering/Resolving]
  - Tendon pain [Recovering/Resolving]

NARRATIVE: CASE EVENT DATE: 20200716
